FAERS Safety Report 4790526-3 (Version None)
Quarter: 2005Q4

REPORT INFORMATION
  Report Type: 
  Country: None (occurrence: None)
  Receive Date: 20051005
  Receipt Date: 20050930
  Transmission Date: 20060501
  Serious: Yes (Hospitalization)
  Sender: FDA-Public Use
  Company Number: ZONI002213

PATIENT
  Age: 21 Year
  Sex: Female
  Weight: 61 kg

DRUGS (5)
  1. ZONEGRAN [Suspect]
     Indication: EPILEPSY
     Dosage: SEE IMAGE
     Route: 048
     Dates: start: 20030101, end: 20050801
  2. ZONEGRAN [Suspect]
     Indication: EPILEPSY
     Dosage: SEE IMAGE
     Route: 048
     Dates: start: 20050801
  3. DILANTIN [Concomitant]
  4. KLONOPIN [Suspect]
  5. DEPO-PROVERA SUSPENSION/INJ [Concomitant]

REACTIONS (4)
  - ABASIA [None]
  - COLLAGEN-VASCULAR DISEASE [None]
  - MOBILITY DECREASED [None]
  - MUSCULOSKELETAL STIFFNESS [None]
